FAERS Safety Report 11307995 (Version 1)
Quarter: 2015Q3

REPORT INFORMATION
  Report Type: Other
  Country: NL (occurrence: NL)
  Receive Date: 20150724
  Receipt Date: 20150724
  Transmission Date: 20151125
  Serious: Yes (Hospitalization)
  Sender: FDA-Public Use
  Company Number: NL-JUBILANT GENERICS LIMITED-1040678

PATIENT
  Age: 42 Year
  Sex: Male

DRUGS (1)
  1. OLANZAPINE. [Suspect]
     Active Substance: OLANZAPINE

REACTIONS (2)
  - Post-injection delirium sedation syndrome [Recovered/Resolved]
  - Blood glucose [Recovered/Resolved]

NARRATIVE: CASE EVENT DATE: 20150717
